FAERS Safety Report 6011943-X (Version None)
Quarter: 2008Q4

REPORT INFORMATION
  Report Type: 
  Country: None (occurrence: None)
  Receive Date: 20081218
  Receipt Date: 20081008
  Transmission Date: 20090506
  Serious: No
  Sender: FDA-Public Use
  Company Number: US-ASTRAZENECA-2008UW22183

PATIENT
  Age: 84 Year
  Sex: Female
  Weight: 77.1 kg

DRUGS (4)
  1. CRESTOR [Suspect]
     Indication: BLOOD CHOLESTEROL INCREASED
     Route: 048
  2. MAGNESIUM SULFATE [Concomitant]
  3. DIOVAN [Concomitant]
     Dosage: ONCE DAILY
  4. CARDIZEM [Concomitant]
     Dosage: ONCE IN PM

REACTIONS (4)
  - ABDOMINAL DISCOMFORT [None]
  - DRY THROAT [None]
  - FATIGUE [None]
  - LOW DENSITY LIPOPROTEIN INCREASED [None]
